FAERS Safety Report 18905526 (Version 1)
Quarter: 2021Q1

REPORT INFORMATION
  Report Type: Spontaneous
  Country: US (occurrence: US)
  Receive Date: 20210217
  Receipt Date: 20210217
  Transmission Date: 20210420
  Serious: No
  Sender: FDA-Public Use
  Company Number: US-IMMUNOMEDICS, INC.-2020IMMU000732

PATIENT
  Age: 35 Year
  Sex: Female
  Weight: 66 kg

DRUGS (1)
  1. TRODELVY [Suspect]
     Active Substance: SACITUZUMAB GOVITECAN-HZIY
     Indication: TRIPLE NEGATIVE BREAST CANCER
     Dosage: 480 MG/KG, DAY 1 AND 8 OF 21 DAY CYCEL
     Route: 042
     Dates: start: 202006, end: 202006

REACTIONS (1)
  - Tinnitus [Not Recovered/Not Resolved]
